FAERS Safety Report 9703421 (Version 1)
Quarter: 2013Q4

REPORT INFORMATION
  Report Type: Spontaneous
  Country: US (occurrence: None)
  Receive Date: 20131121
  Receipt Date: 20131121
  Transmission Date: 20140711
  Serious: Yes (Hospitalization)
  Sender: FDA-Public Use
  Company Number: None

PATIENT
  Age: 61 Year
  Sex: Female

DRUGS (28)
  1. CLONIDINE [Suspect]
     Indication: HYPERTENSION
     Route: 048
     Dates: start: 20110114
  2. CLONIDINE [Concomitant]
  3. CARVEDILOL [Concomitant]
  4. AMITRIPTYLINE [Concomitant]
  5. CLONAZEPAM [Concomitant]
  6. VENLAFAZINE ER [Concomitant]
  7. ALLOPURINOL [Concomitant]
  8. KLOR CON [Concomitant]
  9. ZETIA [Concomitant]
  10. OXYCODON/APAP [Concomitant]
  11. ODANSETRON [Concomitant]
  12. DIVLPROEX SOD [Concomitant]
  13. SIMVASTATIN [Concomitant]
  14. ABILIFY [Concomitant]
  15. FUROSEMIDE [Concomitant]
  16. AMLODIPINE [Concomitant]
  17. LISINOPRIL [Concomitant]
  18. MONTELUKAST [Concomitant]
  19. PANTOPRAZOLE [Concomitant]
  20. PREMARI [Concomitant]
  21. METANX [Concomitant]
  22. CALCIUM [Concomitant]
  23. FLAXSEED [Concomitant]
  24. GENTEAL [Concomitant]
  25. MAGNESIUM [Concomitant]
  26. TYLENOL EXTRA STRENGTH [Concomitant]
  27. VITAMIN D [Concomitant]
  28. VITAMIN C [Concomitant]

REACTIONS (3)
  - Loss of consciousness [None]
  - Loss of consciousness [None]
  - Product substitution issue [None]
